FAERS Safety Report 8041439-5 (Version None)
Quarter: 2012Q1

REPORT INFORMATION
  Report Type: 
  Country: None (occurrence: None)
  Receive Date: 20120112
  Receipt Date: 20120110
  Transmission Date: 20120608
  Serious: Yes (Hospitalization, Other)
  Sender: FDA-Public Use
  Company Number: US-PFIZER INC-2012008338

PATIENT
  Sex: Female
  Weight: 47.619 kg

DRUGS (7)
  1. FLOVENT HFA [Concomitant]
     Indication: CHRONIC OBSTRUCTIVE PULMONARY DISEASE
     Dosage: 110 UG,DAILY
  2. ACETAMINOPHEN AND HYDROCODONE BITARTRATE [Concomitant]
     Indication: PAIN
     Dosage: [HYDROCODONE BITARTRATE 5]/[PARACETAMOL  325 MG], AS NEEDED
  3. LISINOPRIL [Concomitant]
     Indication: HYPERTENSION
     Dosage: 10 MG, DAILY
  4. PAROXETINE [Concomitant]
     Indication: DEPRESSION
     Dosage: 20 MG,DAILY
  5. LIPITOR [Suspect]
     Indication: BLOOD CHOLESTEROL INCREASED
     Dosage: 80 MG, DAILY
     Route: 048
     Dates: start: 20110101
  6. BUPROPION [Concomitant]
     Indication: SMOKING CESSATION THERAPY
     Dosage: 100 MG, 2X/DAY
  7. ACETYLSALICYLIC ACID [Concomitant]
     Indication: ANTICOAGULANT THERAPY
     Dosage: 325 MG,DAILY

REACTIONS (2)
  - ILL-DEFINED DISORDER [None]
  - CORONARY ARTERY DISEASE [None]
